FAERS Safety Report 25019846 (Version 1)
Quarter: 2025Q1

REPORT INFORMATION
  Report Type: Report from Study
  Country: CN (occurrence: CN)
  Receive Date: 20250227
  Receipt Date: 20250227
  Transmission Date: 20250409
  Serious: Yes (Other)
  Sender: PFIZER
  Company Number: CN-TAKEDA-2023TUS114449

PATIENT
  Age: 34 Year
  Sex: Male
  Weight: 82 kg

DRUGS (9)
  1. BRENTUXIMAB VEDOTIN [Suspect]
     Active Substance: BRENTUXIMAB VEDOTIN
     Indication: Anaplastic large cell lymphoma T- and null-cell types
     Dosage: 98.4 MILLIGRAM, Q3WEEKS
     Route: 041
     Dates: start: 20231018
  2. BRENTUXIMAB VEDOTIN [Suspect]
     Active Substance: BRENTUXIMAB VEDOTIN
     Route: 041
     Dates: start: 20231115, end: 20240112
  3. BRENTUXIMAB VEDOTIN [Suspect]
     Active Substance: BRENTUXIMAB VEDOTIN
     Dosage: 98.4 MILLIGRAM, Q3WEEKS
     Route: 041
     Dates: start: 20240202
  4. CYCLOPHOSPHAMIDE [Concomitant]
     Active Substance: CYCLOPHOSPHAMIDE
     Indication: Anaplastic large cell lymphoma T- and null-cell types
     Dosage: 1520 MILLIGRAM, QD
     Route: 042
  5. CYCLOPHOSPHAMIDE [Concomitant]
     Active Substance: CYCLOPHOSPHAMIDE
     Dosage: 1520 MILLIGRAM, QD
     Route: 042
     Dates: start: 20231115, end: 20231206
  6. EPIRUBICIN [Concomitant]
     Active Substance: EPIRUBICIN
     Indication: Anaplastic large cell lymphoma T- and null-cell types
     Dosage: 142 MILLIGRAM, QD
     Route: 042
     Dates: start: 20231115, end: 20231206
  7. PEGYLATED RECOMBINANT HUMAN GRANULOCYTE COLONY STIMULATING FACTOR [Concomitant]
     Indication: Prophylaxis
     Dosage: 6 MILLIGRAM, QD
     Route: 058
     Dates: start: 20231116, end: 20231215
  8. PREDNISONE ACETATE [Concomitant]
     Active Substance: PREDNISONE ACETATE
     Dosage: 50 MILLIGRAM, BID
     Route: 048
  9. QUETIAPINE FUMARATE [Concomitant]
     Active Substance: QUETIAPINE FUMARATE
     Dosage: 25 MILLIGRAM, QD
     Route: 048

REACTIONS (5)
  - Liver injury [Unknown]
  - Sleep disorder [Recovered/Resolved]
  - Anxiety [Unknown]
  - Chronic gastritis [Unknown]
  - Off label use [Recovered/Resolved]

NARRATIVE: CASE EVENT DATE: 20231018
